FAERS Safety Report 15801588 (Version 1)
Quarter: 2019Q1

REPORT INFORMATION
  Report Type: Spontaneous
  Country: CA (occurrence: CA)
  Receive Date: 20190109
  Receipt Date: 20190109
  Transmission Date: 20190417
  Serious: Yes (Other)
  Sender: FDA-Public Use
  Company Number: CA-MYLANLABS-2019M1000953

PATIENT
  Age: 23 Year
  Sex: Female
  Weight: 64.85 kg

DRUGS (1)
  1. ETHINYLESTRADIOL,LEVONORGESTREL MYLAN [Suspect]
     Active Substance: ETHINYL ESTRADIOL\LEVONORGESTREL
     Indication: CONTRACEPTION
     Dosage: 1 DOSAGE FORM, QD (TABLET)
     Route: 048

REACTIONS (5)
  - Headache [Recovering/Resolving]
  - Product substitution issue [Recovering/Resolving]
  - Metrorrhagia [Recovering/Resolving]
  - Anxiety [Recovering/Resolving]
  - Nausea [Recovering/Resolving]
